FAERS Safety Report 18734161 (Version 1)
Quarter: 2021Q1

REPORT INFORMATION
  Report Type: Spontaneous
  Country: US (occurrence: US)
  Receive Date: 20210113
  Receipt Date: 20210113
  Transmission Date: 20210419
  Serious: No
  Sender: FDA-Public Use
  Company Number: US-TEVA-2021-US-1868750

PATIENT
  Age: 61 Year
  Sex: Female

DRUGS (1)
  1. TRAZODONE [Suspect]
     Active Substance: TRAZODONE HYDROCHLORIDE
     Route: 065
     Dates: start: 1995, end: 1995

REACTIONS (5)
  - Coordination abnormal [Unknown]
  - Drug ineffective [Unknown]
  - Cognitive disorder [Unknown]
  - Speech disorder [Unknown]
  - Sedation [Unknown]
